FAERS Safety Report 21838892 (Version 1)
Quarter: 2023Q1

REPORT INFORMATION
  Report Type: Spontaneous
  Country: US (occurrence: US)
  Receive Date: 20230109
  Receipt Date: 20230109
  Transmission Date: 20230418
  Serious: Yes (Hospitalization, Other)
  Sender: FDA-Public Use
  Company Number: None

PATIENT
  Weight: 102 kg

DRUGS (14)
  1. GAMMAGARD LIQUID [Suspect]
     Active Substance: HUMAN IMMUNOGLOBULIN G
     Indication: Product used for unknown indication
     Dosage: 10 GRAM, 1/WEEK
     Route: 058
  2. GAMMAGARD LIQUID [Suspect]
     Active Substance: HUMAN IMMUNOGLOBULIN G
     Dosage: 9 GRAM, 1/WEEK
     Route: 058
  3. CUVITRU [Suspect]
     Active Substance: HUMAN IMMUNOGLOBULIN G
     Indication: Product used for unknown indication
     Dosage: UNK UNK, 1/WEEK
     Route: 058
     Dates: start: 2022
  4. PREDNISONE [Concomitant]
     Active Substance: PREDNISONE
     Route: 065
  5. BUDESONIDE [Concomitant]
     Active Substance: BUDESONIDE
     Dosage: UNK UNK, BID
     Route: 065
  6. FORMOTEROL [Concomitant]
     Active Substance: FORMOTEROL
     Dosage: UNK UNK, BID
     Route: 065
  7. ALLOPURINOL [Concomitant]
     Active Substance: ALLOPURINOL
     Indication: Blood pressure abnormal
     Dosage: UNK UNK, QD
  8. FUROSEMIDE [Concomitant]
     Active Substance: FUROSEMIDE
     Indication: Blood pressure abnormal
     Dosage: UNK UNK, QD
  9. ZYRTEC [Concomitant]
     Active Substance: CETIRIZINE HYDROCHLORIDE
     Indication: Blood pressure abnormal
     Dosage: UNK UNK, QD
  10. CARDIZEM [Concomitant]
     Active Substance: DILTIAZEM HYDROCHLORIDE
     Dosage: 180 MILLIGRAM
     Route: 065
  11. DOXAZOSIN MESYLATE [Concomitant]
     Active Substance: DOXAZOSIN MESYLATE
     Dosage: 2 MILLIGRAM
     Route: 065
  12. VITAMIN D [Concomitant]
     Active Substance: VITAMIN D NOS
     Dosage: UNK
  13. GABAPENTIN [Concomitant]
     Active Substance: GABAPENTIN
     Indication: Hypoaesthesia
  14. FLEXERIL [Concomitant]
     Active Substance: CYCLOBENZAPRINE HYDROCHLORIDE
     Indication: Hypoaesthesia
     Dosage: UNK

REACTIONS (11)
  - Atypical pneumonia [Unknown]
  - Blood immunoglobulin A decreased [Unknown]
  - Blood immunoglobulin G decreased [Unknown]
  - COVID-19 [Unknown]
  - Weight increased [Unknown]
  - Hypoaesthesia [Recovered/Resolved]
  - Headache [Unknown]
  - Influenza like illness [Recovered/Resolved]
  - Pyrexia [Recovered/Resolved]
  - Dyspnoea [Unknown]
  - Vomiting [Unknown]
